FAERS Safety Report 13703532 (Version 1)
Quarter: 2017Q2

REPORT INFORMATION
  Report Type: Report from Study
  Country: CA (occurrence: CA)
  Receive Date: 20170629
  Receipt Date: 20170629
  Transmission Date: 20170830
  Serious: Yes (Other)
  Sender: FDA-Public Use
  Company Number: CA-HLSUS-2017-CA-000601

PATIENT
  Sex: Female

DRUGS (1)
  1. CLOZARIL [Suspect]
     Active Substance: CLOZAPINE
     Dosage: UNKNOWN DOSE
     Route: 048
     Dates: end: 20170115

REACTIONS (4)
  - Constipation [Unknown]
  - Somnolence [Unknown]
  - Drug interaction [Unknown]
  - General physical health deterioration [Unknown]
